FAERS Safety Report 10184364 (Version 3)
Quarter: 2014Q4

REPORT INFORMATION
  Report Type: Report from Study
  Country: NL (occurrence: NL)
  Receive Date: 20140521
  Receipt Date: 20141110
  Transmission Date: 20150528
  Serious: Yes (Hospitalization)
  Sender: FDA-Public Use
  Company Number: NL-ROCHE-1400293

PATIENT
  Age: 70 Year
  Sex: Male
  Weight: 80 kg

DRUGS (17)
  1. SERETIDE [Concomitant]
     Active Substance: FLUTICASONE FUROATE\SALMETEROL XINAFOATE
     Dosage: FORM 50/500?DOSE: 100/1000MCG
     Route: 065
     Dates: start: 20130820
  2. TRASTUZUMAB [Suspect]
     Active Substance: TRASTUZUMAB
     Route: 042
     Dates: start: 20141105
  3. DOCETAXEL. [Suspect]
     Active Substance: DOCETAXEL
     Route: 042
     Dates: start: 20140908
  4. LOPERAMIDE [Concomitant]
     Active Substance: LOPERAMIDE
     Route: 065
     Dates: start: 20140622, end: 20140707
  5. BEVACIZUMAB [Suspect]
     Active Substance: BEVACIZUMAB
     Indication: GASTRIC CANCER
     Dosage: LAST DOSE RECEIVED: 11/JUN/2014
     Route: 042
     Dates: start: 20140430
  6. BEVACIZUMAB [Suspect]
     Active Substance: BEVACIZUMAB
     Route: 042
     Dates: start: 20141105
  7. TRASTUZUMAB [Suspect]
     Active Substance: TRASTUZUMAB
     Indication: GASTRIC CANCER
     Dosage: LAST DOSE RECEIVED: 11/JUN/2014
     Route: 042
     Dates: start: 20140430
  8. CAPECITABINE. [Suspect]
     Active Substance: CAPECITABINE
     Indication: GASTRIC CANCER
     Dosage: DAY 1-14?LAST DOSE RECEIVED: 11/JUN/2014:
     Route: 048
     Dates: start: 20140430
  9. DOCETAXEL. [Suspect]
     Active Substance: DOCETAXEL
     Indication: GASTRIC CANCER
     Dosage: LAST DOSE RECEIVED: 11/JUN/2014
     Route: 042
     Dates: start: 20140430
  10. OXALIPLATIN. [Suspect]
     Active Substance: OXALIPLATIN
     Indication: GASTRIC CANCER
     Dosage: LAST DOSE RECEIVED: 11/JUN/2014
     Route: 042
     Dates: start: 20140430
  11. VENTOLIN [Concomitant]
     Active Substance: ALBUTEROL SULFATE
     Dosage: MAX DOSE: 800 MCG
     Route: 065
     Dates: start: 20110803
  12. AMOXICILLIN TRIHYDRATE/CLAVULANIC ACID [Concomitant]
     Active Substance: AMOXICILLIN\CLAVULANIC ACID
     Dosage: DAILY DOSE: 50/12.5 MG
     Route: 065
     Dates: start: 20140512, end: 20140517
  13. THIAMINE [Concomitant]
     Active Substance: THIAMINE
     Route: 065
     Dates: start: 20140625, end: 20140628
  14. TRASTUZUMAB [Suspect]
     Active Substance: TRASTUZUMAB
     Dosage: LAST DOSE PRIOR TO SAE: 11/JUN/2014: 510MG
     Route: 042
  15. OXALIPLATIN. [Suspect]
     Active Substance: OXALIPLATIN
     Route: 042
     Dates: start: 20140903
  16. OCTREOTIDE [Concomitant]
     Active Substance: OCTREOTIDE
     Route: 065
     Dates: start: 20140626, end: 20140702
  17. CAPECITABINE. [Suspect]
     Active Substance: CAPECITABINE
     Dosage: DAY 1-14
     Route: 048
     Dates: start: 20141105

REACTIONS (4)
  - Diarrhoea [Recovered/Resolved]
  - Febrile neutropenia [Recovered/Resolved]
  - Pyrexia [Recovered/Resolved]
  - Leukopenia [Recovered/Resolved]

NARRATIVE: CASE EVENT DATE: 20140509
